FAERS Safety Report 12272567 (Version 1)
Quarter: 2016Q2

REPORT INFORMATION
  Report Type: Spontaneous
  Country: US (occurrence: US)
  Receive Date: 20160415
  Receipt Date: 20160415
  Transmission Date: 20160815
  Serious: Yes (Other)
  Sender: FDA-Public Use
  Company Number: US-GE HEALTHCARE MEDICAL DIAGNOSTICS-OSCN-PR-1604L-0049

PATIENT

DRUGS (2)
  1. GADOLINIUM (UNSPECIFIED) [Suspect]
     Active Substance: GADOLINIUM
     Indication: SYNCOPE
     Dosage: DOSE NOT REPORTED
     Route: 065
  2. GADOLINIUM (UNSPECIFIED) [Suspect]
     Active Substance: GADOLINIUM
     Indication: DIAGNOSTIC PROCEDURE

REACTIONS (2)
  - Encephalopathy [Recovered/Resolved]
  - CSF test abnormal [Recovered/Resolved]
